FAERS Safety Report 8918094 (Version 1)
Quarter: 2012Q4

REPORT INFORMATION
  Report Type: 
  Country: US (occurrence: US)
  Receive Date: 20121120
  Receipt Date: 20121120
  Transmission Date: 20130627
  Serious: No
  Sender: FDA-Public Use
  Company Number: US-ASTRAZENECA-2012SE21782

PATIENT
  Age: 61 Year
  Sex: Female

DRUGS (1)
  1. NEXIUM [Suspect]
     Dosage: ONCE A DAY
     Route: 048

REACTIONS (3)
  - Asthma [Unknown]
  - Ulcer haemorrhage [Unknown]
  - Drug prescribing error [Unknown]
